FAERS Safety Report 25788567 (Version 1)
Quarter: 2025Q3

REPORT INFORMATION
  Report Type: Spontaneous
  Country: US (occurrence: US)
  Receive Date: 20250910
  Receipt Date: 20250910
  Transmission Date: 20251021
  Serious: Yes (Other)
  Sender: AMGEN
  Company Number: US-AMGEN-USASP2025129937

PATIENT
  Age: 72 Year
  Sex: Male

DRUGS (6)
  1. APREMILAST [Suspect]
     Active Substance: APREMILAST
     Indication: Psoriasis
     Route: 065
  2. BEVACIZUMAB [Suspect]
     Active Substance: BEVACIZUMAB
     Indication: Hepatocellular carcinoma
     Route: 065
  3. BEVACIZUMAB [Suspect]
     Active Substance: BEVACIZUMAB
     Indication: Off label use
  4. TREMELIMUMAB [Concomitant]
     Active Substance: TREMELIMUMAB
  5. DURVALUMAB [Concomitant]
     Active Substance: DURVALUMAB
  6. ATEZOLIZUMAB [Concomitant]
     Active Substance: ATEZOLIZUMAB

REACTIONS (6)
  - Hepatocellular carcinoma [Unknown]
  - Hyperthyroidism [Unknown]
  - Therapy partial responder [Unknown]
  - Drug intolerance [Unknown]
  - Off label use [Unknown]
  - Skin fissures [Unknown]
